FAERS Safety Report 18670605 (Version 1)
Quarter: 2020Q4

REPORT INFORMATION
  Report Type: Spontaneous
  Country: US (occurrence: US)
  Receive Date: 20201228
  Receipt Date: 20201228
  Transmission Date: 20210114
  Serious: Yes (Death, Hospitalization)
  Sender: FDA-Public Use
  Company Number: US-PFIZER INC-HQWYE464003APR03

PATIENT
  Age: 70 Year
  Sex: Male

DRUGS (3)
  1. VANCOMYCIN HCL [Suspect]
     Active Substance: VANCOMYCIN HYDROCHLORIDE
     Indication: ABSCESS
     Dosage: UNK
     Route: 042
  2. VANCOMYCIN HCL [Suspect]
     Active Substance: VANCOMYCIN HYDROCHLORIDE
     Indication: STAPHYLOCOCCAL INFECTION
     Dosage: 1000 MG TIMES ONE DOSE
     Route: 042
  3. VANCOMYCIN HCL [Suspect]
     Active Substance: VANCOMYCIN HYDROCHLORIDE
     Dosage: 500 MG TIMES ONE DOSE
     Route: 042

REACTIONS (3)
  - Hypersensitivity [Unknown]
  - Toxic epidermal necrolysis [Fatal]
  - Tubulointerstitial nephritis [Unknown]
